FAERS Safety Report 12262152 (Version 1)
Quarter: 2016Q2

REPORT INFORMATION
  Report Type: Spontaneous
  Country: US (occurrence: US)
  Receive Date: 20160413
  Receipt Date: 20160413
  Transmission Date: 20160815
  Serious: Yes (Hospitalization, Other)
  Sender: FDA-Public Use
  Company Number: US-GLAXOSMITHKLINE-US2016047522

PATIENT
  Age: 28 Year
  Sex: Female

DRUGS (22)
  1. BREO ELLIPTA [Suspect]
     Active Substance: FLUTICASONE FUROATE\VILANTEROL TRIFENATATE
     Indication: PNEUMONITIS
     Dosage: 1 PUFF(S), QD
     Route: 055
     Dates: start: 201511
  2. KEFLEX [Suspect]
     Active Substance: CEPHALEXIN
  3. BUSPAR [Concomitant]
     Active Substance: BUSPIRONE HYDROCHLORIDE
  4. MORPHINE IR [Concomitant]
     Active Substance: MORPHINE
  5. OXYGEN. [Concomitant]
     Active Substance: OXYGEN
  6. CIPRO [Suspect]
     Active Substance: CIPROFLOXACIN HYDROCHLORIDE
  7. INDERAL [Concomitant]
     Active Substance: PROPRANOLOL HYDROCHLORIDE
  8. BACLOFEN. [Concomitant]
     Active Substance: BACLOFEN
  9. ALEVE [Concomitant]
     Active Substance: NAPROXEN SODIUM
  10. PULMICORT TURBUHALER [Concomitant]
     Active Substance: BUDESONIDE
  11. TYLENOL [Concomitant]
     Active Substance: ACETAMINOPHEN
  12. ATROVENT [Concomitant]
     Active Substance: IPRATROPIUM BROMIDE
  13. FISH OIL [Concomitant]
     Active Substance: FISH OIL
  14. MELATONIN [Concomitant]
     Active Substance: MELATONIN
  15. NEBULIZED ALBUTEROL [Concomitant]
     Active Substance: ALBUTEROL
  16. PREDNISONE. [Concomitant]
     Active Substance: PREDNISONE
  17. AMITIZA [Concomitant]
     Active Substance: LUBIPROSTONE
  18. OSCAL [Concomitant]
     Active Substance: CALCIUM CARBONATE
  19. ALENDRONATE [Concomitant]
     Active Substance: ALENDRONATE SODIUM
  20. PRAZOSIN [Concomitant]
     Active Substance: PRAZOSIN
  21. PRISTIQ EXTENDED-RELEASE [Concomitant]
     Active Substance: DESVENLAFAXINE SUCCINATE
  22. MORPHINE PUMP [Concomitant]
     Active Substance: MORPHINE

REACTIONS (6)
  - Oxygen saturation decreased [Recovering/Resolving]
  - Sepsis [Recovering/Resolving]
  - Staphylococcal infection [Not Recovered/Not Resolved]
  - White blood cell count increased [Recovering/Resolving]
  - Drug hypersensitivity [Unknown]
  - Organising pneumonia [Recovering/Resolving]

NARRATIVE: CASE EVENT DATE: 201603
